FAERS Safety Report 14825629 (Version 1)
Quarter: 2018Q2

REPORT INFORMATION
  Report Type: Spontaneous
  Country: FR (occurrence: FR)
  Receive Date: 20180430
  Receipt Date: 20180430
  Transmission Date: 20180711
  Serious: Yes (Other)
  Sender: FDA-Public Use
  Company Number: FR-MERCK KGAA-2046789

PATIENT
  Sex: Female

DRUGS (1)
  1. NOVOTHYROX [Suspect]
     Active Substance: LEVOTHYROXINE SODIUM
     Indication: PRODUCT USED FOR UNKNOWN INDICATION

REACTIONS (15)
  - Insomnia [None]
  - Irritability [None]
  - Disturbance in attention [None]
  - Blood pressure decreased [None]
  - Feeling abnormal [None]
  - Decreased activity [None]
  - Pain in extremity [None]
  - Dizziness [None]
  - Mobility decreased [None]
  - Loss of personal independence in daily activities [None]
  - Headache [None]
  - Paraesthesia [None]
  - Fatigue [None]
  - Sensory loss [None]
  - Weight increased [None]
